FAERS Safety Report 13797829 (Version 1)
Quarter: 2017Q3

REPORT INFORMATION
  Report Type: Spontaneous
  Country: US (occurrence: US)
  Receive Date: 20170726
  Receipt Date: 20170726
  Transmission Date: 20171127
  Serious: Yes (Hospitalization)
  Sender: FDA-Public Use
  Company Number: None

PATIENT
  Age: 63 Year
  Sex: Female

DRUGS (2)
  1. REPATHA [Suspect]
     Active Substance: EVOLOCUMAB
     Indication: ARTERIOSCLEROSIS
     Route: 058
     Dates: start: 20170407, end: 20170713
  2. REPATHA [Suspect]
     Active Substance: EVOLOCUMAB
     Indication: HYPERLIPIDAEMIA
     Route: 058
     Dates: start: 20170407, end: 20170713

REACTIONS (5)
  - Oedema [None]
  - Oedema peripheral [None]
  - Muscle spasms [None]
  - Heart rate increased [None]
  - Hypotension [None]

NARRATIVE: CASE EVENT DATE: 20170713
